FAERS Safety Report 9198967 (Version 1)
Quarter: 2013Q1

REPORT INFORMATION
  Report Type: Spontaneous
  Country: US (occurrence: US)
  Receive Date: 20130329
  Receipt Date: 20130329
  Transmission Date: 20140127
  Serious: No
  Sender: FDA-Public Use
  Company Number: US-PFIZER INC-2013096334

PATIENT
  Age: 80 Year
  Sex: Female
  Weight: 72.56 kg

DRUGS (2)
  1. ALAVERT [Suspect]
     Indication: MILK ALLERGY
     Dosage: 10 MG, DAILY
     Route: 048
     Dates: start: 201302
  2. AVAPRO [Suspect]
     Indication: HYPERTENSION
     Dosage: 150 MG, DAILY
     Route: 048

REACTIONS (1)
  - Swelling face [Not Recovered/Not Resolved]
